FAERS Safety Report 19790882 (Version 4)
Quarter: 2022Q1

REPORT INFORMATION
  Report Type: Spontaneous
  Country: US (occurrence: US)
  Receive Date: 20210906
  Receipt Date: 20220309
  Transmission Date: 20220423
  Serious: Yes (Hospitalization, Other)
  Sender: FDA-Public Use
  Company Number: US-NOVARTISTESTPH-NVSC2021US197830

PATIENT
  Age: 75 Year
  Sex: Female
  Weight: 66 kg

DRUGS (89)
  1. KYMRIAH [Suspect]
     Active Substance: TISAGENLECLEUCEL
     Indication: Diffuse large B-cell lymphoma refractory
     Dosage: UNK, (0.6X10^8)
     Route: 042
     Dates: start: 20210726, end: 20210726
  2. KYMRIAH [Suspect]
     Active Substance: TISAGENLECLEUCEL
     Dosage: 600 MG, ONCE/SINGLE
     Route: 042
     Dates: start: 20210726, end: 20210726
  3. SUCRALFATE [Suspect]
     Active Substance: SUCRALFATE
     Indication: Product used for unknown indication
     Dosage: 1 DF, QID
     Route: 048
  4. RITUXIMAB [Suspect]
     Active Substance: RITUXIMAB
     Indication: Product used for unknown indication
     Dosage: UNK
     Route: 065
     Dates: start: 20210623
  5. RITUXIMAB [Suspect]
     Active Substance: RITUXIMAB
     Dosage: UNK
     Route: 065
     Dates: start: 20210702
  6. LANSOPRAZOLE [Concomitant]
     Active Substance: LANSOPRAZOLE
     Indication: Product used for unknown indication
     Dosage: 30 MG, QD
     Route: 048
  7. LEVETIRACETAM [Concomitant]
     Active Substance: LEVETIRACETAM
     Indication: Product used for unknown indication
     Dosage: 1 DF, BID
     Route: 048
     Dates: start: 20210804, end: 20210804
  8. METHYLPREDNISOLONE [Concomitant]
     Active Substance: METHYLPREDNISOLONE
     Indication: Product used for unknown indication
     Dosage: UNK, QD (1 PACKET)
     Route: 048
  9. PROCHLORPERAZINE [Concomitant]
     Active Substance: PROCHLORPERAZINE
     Indication: Nausea
     Dosage: 1 DF, Q6H (PRN)
     Route: 048
     Dates: start: 20210726
  10. DIPHENHYDRAMINE [Concomitant]
     Active Substance: DIPHENHYDRAMINE
     Indication: Product used for unknown indication
     Dosage: 0.25 ML, PRN
     Route: 042
  11. DIPHENHYDRAMINE [Concomitant]
     Active Substance: DIPHENHYDRAMINE
     Dosage: 25 MG, Q4H (ON CALL)
     Route: 048
     Dates: start: 20210726
  12. DIPHENHYDRAMINE [Concomitant]
     Active Substance: DIPHENHYDRAMINE
     Dosage: 12.5 MG (IV PUSH, INJECTION,ONCALL, PRN)
     Route: 042
     Dates: start: 20210726
  13. ONDANSETRON [Concomitant]
     Active Substance: ONDANSETRON
     Indication: Product used for unknown indication
     Dosage: 8 MG, QD
     Route: 048
  14. ONDANSETRON [Concomitant]
     Active Substance: ONDANSETRON
     Dosage: 1 DF, Q8H (PRN)
     Route: 065
  15. ALLOPURINOL [Concomitant]
     Active Substance: ALLOPURINOL
     Indication: Product used for unknown indication
     Dosage: 100 MG, PRN (STRENGTH: 100 MG)
     Route: 048
  16. ALLOPURINOL [Concomitant]
     Active Substance: ALLOPURINOL
     Dosage: 300 MG, QD (STRENGTH: 100 MG)
     Route: 048
     Dates: start: 20210726
  17. ACETAMINOPHEN [Concomitant]
     Active Substance: ACETAMINOPHEN
     Indication: Product used for unknown indication
     Dosage: 2 DF, PRN (ON CALL)
     Route: 048
  18. ACETAMINOPHEN [Concomitant]
     Active Substance: ACETAMINOPHEN
     Dosage: 650 MG, Q4H
     Route: 048
     Dates: start: 20210727
  19. CIPROFLOXACIN [Concomitant]
     Active Substance: CIPROFLOXACIN
     Indication: Febrile neutropenia
     Dosage: 1 DF, Q12H (SOLID-CIPRO)
     Route: 048
     Dates: start: 20210730
  20. CIPROFLOXACIN [Concomitant]
     Active Substance: CIPROFLOXACIN
     Dosage: 1 DF, Q12H FOR 10 DAYS
     Route: 048
     Dates: start: 20210730
  21. FLUCONAZOLE [Concomitant]
     Active Substance: FLUCONAZOLE
     Indication: Product used for unknown indication
     Dosage: 2 DF, QD
     Route: 048
     Dates: start: 20210726
  22. FLUCONAZOLE [Concomitant]
     Active Substance: FLUCONAZOLE
     Dosage: 2 DF, QD
     Route: 048
     Dates: start: 20210804
  23. ACYCLOVIR [Concomitant]
     Active Substance: ACYCLOVIR
     Indication: Product used for unknown indication
     Dosage: 1 DF, BID
     Route: 048
     Dates: start: 20210804, end: 20210814
  24. ACYCLOVIR [Concomitant]
     Active Substance: ACYCLOVIR
     Dosage: 1 DF, BID
     Route: 048
     Dates: start: 20210804, end: 20210814
  25. CATHFLO ACTIVASE [Concomitant]
     Active Substance: ALTEPLASE
     Indication: Product used for unknown indication
     Dosage: 2 ML, PRN
     Route: 042
  26. CATHFLO ACTIVASE [Concomitant]
     Active Substance: ALTEPLASE
     Dosage: 2 MG, PRN
     Route: 042
     Dates: start: 20210726
  27. CATHFLO ACTIVASE [Concomitant]
     Active Substance: ALTEPLASE
     Dosage: 2 MG, ONCE
     Route: 042
     Dates: start: 20210729, end: 20210729
  28. ATENOLOL [Concomitant]
     Active Substance: ATENOLOL
     Indication: Product used for unknown indication
     Dosage: 1 DF, BID
     Route: 048
  29. MAALOX ANTACID [Concomitant]
     Active Substance: ALUMINUM HYDROXIDE\DIMETHICONE\MAGNESIUM HYDROXIDE
     Indication: Product used for unknown indication
     Dosage: 30 ML, Q4H (PRN)
     Route: 048
  30. FLUDARABINE [Concomitant]
     Active Substance: FLUDARABINE PHOSPHATE
     Indication: Lymphodepletion
     Dosage: 44 MG
     Route: 042
  31. FLUDARABINE [Concomitant]
     Active Substance: FLUDARABINE PHOSPHATE
     Indication: Chemotherapy
  32. CYTOXAN [Concomitant]
     Active Substance: CYCLOPHOSPHAMIDE
     Indication: Chemotherapy
     Dosage: UNK
     Route: 065
  33. LEVAQUIN [Concomitant]
     Active Substance: LEVOFLOXACIN
     Indication: Hypersensitivity
     Dosage: UNK
     Route: 065
  34. CYCLOPHOSPHAMIDE\DOXORUBICIN\PREDNISONE\RITUXIMAB\VINCRISTINE [Concomitant]
     Active Substance: CYCLOPHOSPHAMIDE\DOXORUBICIN\PREDNISONE\RITUXIMAB\VINCRISTINE
     Indication: Product used for unknown indication
     Dosage: UNK
     Route: 065
  35. BENDAMUSTINE [Concomitant]
     Active Substance: BENDAMUSTINE
     Indication: Product used for unknown indication
     Dosage: UNK (CYCLE 1)
     Route: 065
     Dates: start: 20210702
  36. BENDAMUSTINE [Concomitant]
     Active Substance: BENDAMUSTINE
     Dosage: UNK (CYCLE 2)
     Route: 065
     Dates: start: 20210623
  37. SODIUM CHLORIDE [Concomitant]
     Active Substance: SODIUM CHLORIDE
     Indication: Product used for unknown indication
     Dosage: 20 ML, Q12H (CENTRAL LINE FLUSH)
     Route: 042
  38. SODIUM CHLORIDE [Concomitant]
     Active Substance: SODIUM CHLORIDE
     Dosage: 20 ML, PRN (CENTRAL LINE FLUSH)
     Route: 065
  39. MAALOX ANTACID [Concomitant]
     Active Substance: ALUMINUM HYDROXIDE\DIMETHICONE\MAGNESIUM HYDROXIDE
     Indication: Product used for unknown indication
     Dosage: 30 ML, Q4H (LIQUID)
     Route: 048
  40. MAALOX ANTACID [Concomitant]
     Active Substance: ALUMINUM HYDROXIDE\DIMETHICONE\MAGNESIUM HYDROXIDE
     Dosage: 30 ML, PRN (LIQUID)
     Route: 048
  41. TESSALON [Concomitant]
     Active Substance: BENZONATATE
     Indication: Product used for unknown indication
     Dosage: 100 MG, TID (PRN)
     Route: 048
     Dates: start: 20210727
  42. TESSALON [Concomitant]
     Active Substance: BENZONATATE
     Dosage: 100 MG
     Route: 048
     Dates: start: 20210727, end: 20210727
  43. CODEINE [Concomitant]
     Active Substance: CODEINE
     Indication: Cough
     Dosage: 15 MG, Q4H (10 DAYS)
     Route: 048
     Dates: start: 20210727, end: 20210806
  44. HEPARIN [Concomitant]
     Active Substance: HEPARIN SODIUM
     Indication: Product used for unknown indication
     Dosage: 5 ML, QD
     Route: 065
     Dates: start: 20210808, end: 20210808
  45. HYDRALAZINE [Concomitant]
     Active Substance: HYDRALAZINE HYDROCHLORIDE
     Indication: Blood pressure measurement
     Dosage: 5 MG, QD
     Route: 042
     Dates: start: 20210801, end: 20210801
  46. HYDRALAZINE [Concomitant]
     Active Substance: HYDRALAZINE HYDROCHLORIDE
     Dosage: 10 MG, QD (TAB)
     Route: 048
     Dates: start: 20210730, end: 20210730
  47. HYDRALAZINE [Concomitant]
     Active Substance: HYDRALAZINE HYDROCHLORIDE
     Dosage: 10 MG, Q6H
     Route: 048
     Dates: start: 20210804
  48. CEFEPIME [Concomitant]
     Active Substance: CEFEPIME HYDROCHLORIDE
     Indication: Bacterial infection
     Dosage: 25 ML, QH
     Route: 042
  49. FAMOTIDINE [Concomitant]
     Active Substance: FAMOTIDINE
     Indication: Product used for unknown indication
     Dosage: 20 MG, BID
     Route: 042
     Dates: start: 20210731
  50. FILGRASTIM [Concomitant]
     Active Substance: FILGRASTIM
     Indication: Product used for unknown indication
     Dosage: 300 UG, QD
     Route: 065
     Dates: start: 20210728
  51. METOPROLIN [Concomitant]
     Indication: Product used for unknown indication
     Dosage: 25 MG, Q12H
     Route: 048
  52. SODIUM CHLORIDE [Concomitant]
     Active Substance: SODIUM CHLORIDE
     Indication: Product used for unknown indication
     Dosage: 1000 ML, ONCE/SINGLE
     Route: 042
     Dates: start: 20210808, end: 20210808
  53. SODIUM CHLORIDE [Concomitant]
     Active Substance: SODIUM CHLORIDE
     Dosage: 1000 ML
     Route: 042
     Dates: start: 20210728, end: 20210728
  54. POTASSIUM CHLORIDE [Concomitant]
     Active Substance: POTASSIUM CHLORIDE
     Indication: Product used for unknown indication
     Dosage: UNK
     Route: 065
  55. MAGNESIUM SULFATE [Concomitant]
     Active Substance: MAGNESIUM SULFATE
     Indication: Product used for unknown indication
     Dosage: UNK
     Route: 065
  56. PIPERACILLIN [Concomitant]
     Active Substance: PIPERACILLIN
     Indication: Product used for unknown indication
     Dosage: UNK
     Route: 065
  57. TAZOBACTAM [Concomitant]
     Active Substance: TAZOBACTAM
     Indication: Product used for unknown indication
     Dosage: UNK
     Route: 065
  58. ZOFRAN [Concomitant]
     Active Substance: ONDANSETRON HYDROCHLORIDE
     Indication: Product used for unknown indication
     Dosage: 4 MG, Q8H
     Route: 042
     Dates: start: 20210731, end: 20210731
  59. SALINE [Concomitant]
     Active Substance: SODIUM CHLORIDE
     Indication: Product used for unknown indication
     Dosage: 20 ML, PRN
     Route: 065
     Dates: start: 20210726
  60. DEXTROSE [Concomitant]
     Active Substance: DEXTROSE
     Indication: Product used for unknown indication
     Dosage: UNK
     Route: 065
  61. ALBUMIN HUMAN [Concomitant]
     Active Substance: ALBUMIN HUMAN
     Indication: Product used for unknown indication
     Dosage: 25 G, ONCE OVER 60 MIN
     Route: 042
     Dates: start: 20210728, end: 20210728
  62. KETOROLAC [Concomitant]
     Active Substance: KETOROLAC TROMETHAMINE
     Indication: Product used for unknown indication
     Dosage: 15 MG, QD
     Route: 042
     Dates: start: 20210801, end: 20210801
  63. VANCOMYCIN [Concomitant]
     Active Substance: VANCOMYCIN
     Indication: Product used for unknown indication
     Dosage: 1500 MG (1500 MG= 15 ML, LOADING DOSE)
     Route: 042
     Dates: start: 20210727, end: 20210727
  64. VANCOMYCIN [Concomitant]
     Active Substance: VANCOMYCIN
     Dosage: 1000 MG, QD
     Route: 042
     Dates: start: 20210728, end: 20210807
  65. VANCOMYCIN [Concomitant]
     Active Substance: VANCOMYCIN
     Dosage: 1500 MG
     Route: 065
     Dates: start: 20210801, end: 20210801
  66. VANCOMYCIN [Concomitant]
     Active Substance: VANCOMYCIN
     Dosage: 1000 MG, QD
     Route: 042
     Dates: start: 20210802, end: 20210812
  67. PIPERACILLIN AND TAZOBACTAM [Concomitant]
     Active Substance: PIPERACILLIN SODIUM\TAZOBACTAM SODIUM
     Indication: Pneumonia
     Dosage: 3375 MG, Q8H (INFUSE 25 ML/HR OVER 4 HOUR FOR 10 DAYS)
     Route: 041
  68. SCOPOLAMINE [Concomitant]
     Active Substance: SCOPOLAMINE
     Indication: Product used for unknown indication
     Dosage: 0.5 DF Q72H
     Route: 065
     Dates: start: 20210730
  69. IBUPROFEN [Concomitant]
     Active Substance: IBUPROFEN
     Indication: Product used for unknown indication
     Dosage: 400 MG, QD
     Route: 048
     Dates: start: 20210727, end: 20210727
  70. IBUPROFEN [Concomitant]
     Active Substance: IBUPROFEN
     Dosage: 400 MG, QD
     Route: 048
     Dates: start: 20210728, end: 20210728
  71. IBUPROFEN [Concomitant]
     Active Substance: IBUPROFEN
     Dosage: 400 MG, QD
     Route: 048
     Dates: start: 20210729, end: 20210729
  72. IBUPROFEN [Concomitant]
     Active Substance: IBUPROFEN
     Dosage: 400 MG, QD
     Route: 048
     Dates: start: 20210730, end: 20210730
  73. SODIUM PHOSPHATE [Concomitant]
     Active Substance: SODIUM PHOSPHATE
     Indication: Product used for unknown indication
     Dosage: 30 MMOL, Q6H (ORDER DOSE IS MIXED IN 250 ML)
     Route: 042
     Dates: start: 20210730, end: 20210730
  74. PROMETHAZINE [Concomitant]
     Active Substance: PROMETHAZINE HYDROCHLORIDE
     Indication: Product used for unknown indication
     Dosage: 12.5 MG, Q4H (PRN)
     Route: 042
     Dates: start: 20210731
  75. ACYCLOVIR [Concomitant]
     Active Substance: ACYCLOVIR
     Indication: Product used for unknown indication
     Dosage: 300 MG, Q8H (INFUSE 100 ML/HR OVER 60 MIN X 7 DAYS)
     Route: 065
     Dates: start: 20210731
  76. ACYCLOVIR [Concomitant]
     Active Substance: ACYCLOVIR
     Dosage: 400 MG, Q12H (INFUSE 100 ML/HR, OVER 60 MIN)
     Route: 065
     Dates: start: 20210731
  77. FAMOTIDINE [Concomitant]
     Active Substance: FAMOTIDINE
     Indication: Product used for unknown indication
     Dosage: 1 DF, BID
     Route: 048
     Dates: start: 20210729
  78. FAMOTIDINE [Concomitant]
     Active Substance: FAMOTIDINE
     Dosage: 20 MG, BID
     Route: 048
     Dates: start: 20210804
  79. FLUCONAZOLE [Concomitant]
     Active Substance: FLUCONAZOLE
     Indication: Product used for unknown indication
     Dosage: 400 MG, Q24H
     Route: 042
     Dates: start: 20210731
  80. LASIX [Concomitant]
     Active Substance: FUROSEMIDE
     Indication: Product used for unknown indication
     Dosage: 20 MG
     Route: 042
     Dates: start: 20210730, end: 20210730
  81. LORAZEPAM [Concomitant]
     Active Substance: LORAZEPAM
     Indication: Product used for unknown indication
     Dosage: 0.5 MG (ONCE)
     Route: 042
     Dates: start: 20210731, end: 20210731
  82. LORAZEPAM [Concomitant]
     Active Substance: LORAZEPAM
     Dosage: 0.5 MG (ONCE)
     Route: 042
     Dates: start: 20210731, end: 20210731
  83. METOPROLOL [Concomitant]
     Active Substance: METOPROLOL
     Indication: Product used for unknown indication
     Dosage: 2.5 MG (ONCE)
     Route: 042
     Dates: start: 20210731, end: 20210731
  84. METOPROLOL [Concomitant]
     Active Substance: METOPROLOL
     Dosage: 25 MG, Q12H
     Route: 065
     Dates: start: 20210727
  85. ATIVAN [Concomitant]
     Active Substance: LORAZEPAM
     Indication: Immune effector cell-associated neurotoxicity syndrome
     Dosage: 2 MG, Q6H
     Route: 042
     Dates: start: 20210731
  86. OLANZAPINE [Concomitant]
     Active Substance: OLANZAPINE
     Indication: Immune effector cell-associated neurotoxicity syndrome
     Dosage: 5 MG, QD
     Route: 030
     Dates: start: 20210731, end: 20210731
  87. OLANZAPINE [Concomitant]
     Active Substance: OLANZAPINE
     Dosage: 2.5 MG (ONCE)
     Route: 030
     Dates: start: 20210731, end: 20210731
  88. OLANZAPINE [Concomitant]
     Active Substance: OLANZAPINE
     Dosage: 5 MG (ONCE)
     Route: 030
     Dates: start: 20210731, end: 20210731
  89. OLANZAPINE [Concomitant]
     Active Substance: OLANZAPINE
     Dosage: 5 MG (ONCE)
     Route: 030
     Dates: start: 20210731, end: 20210731

REACTIONS (28)
  - Pyrexia [Unknown]
  - Non-Hodgkin^s lymphoma stage IV [Unknown]
  - Immune effector cell-associated neurotoxicity syndrome [Recovered/Resolved]
  - Cytokine release syndrome [Recovered/Resolved]
  - Facial paralysis [Unknown]
  - Encephalopathy [Unknown]
  - Neurotoxicity [Unknown]
  - Hypotension [Unknown]
  - Nervous system disorder [Unknown]
  - Infection [Not Recovered/Not Resolved]
  - Staphylococcus test positive [Unknown]
  - Serum ferritin increased [Unknown]
  - Red cell distribution width increased [Unknown]
  - Protein total decreased [Unknown]
  - Interleukin level increased [Unknown]
  - C-reactive protein increased [Unknown]
  - Carbon dioxide decreased [Unknown]
  - Blood uric acid decreased [Unknown]
  - Blood urea decreased [Unknown]
  - Blood triglycerides increased [Unknown]
  - Blood phosphorus decreased [Unknown]
  - Blood lactate dehydrogenase increased [Unknown]
  - Blood glucose increased [Unknown]
  - Blood calcium decreased [Unknown]
  - Blood alkaline phosphatase increased [Unknown]
  - Blood albumin decreased [Unknown]
  - Aspartate aminotransferase increased [Unknown]
  - Alanine aminotransferase increased [Unknown]

NARRATIVE: CASE EVENT DATE: 20210726
